FAERS Safety Report 20517170 (Version 1)
Quarter: 2022Q1

REPORT INFORMATION
  Report Type: Spontaneous
  Country: CA (occurrence: CA)
  Receive Date: 20220225
  Receipt Date: 20220225
  Transmission Date: 20220423
  Serious: Yes (Other)
  Sender: FDA-Public Use
  Company Number: CA-NOVARTISPH-NVSC2022CA041552

PATIENT
  Age: 66 Year
  Sex: Female
  Weight: 58.957 kg

DRUGS (1)
  1. TOBRAMYCIN [Suspect]
     Active Substance: TOBRAMYCIN
     Indication: Infection
     Dosage: 2 DRP, QID (2 DROPS)
     Route: 047

REACTIONS (2)
  - Blindness [Unknown]
  - Retinal detachment [Unknown]
